FAERS Safety Report 7727612-1 (Version None)
Quarter: 2011Q3

REPORT INFORMATION
  Report Type: 
  Country: None (occurrence: None)
  Receive Date: 20110902
  Receipt Date: 20110823
  Transmission Date: 20111222
  Serious: Yes (Other)
  Sender: FDA-Public Use
  Company Number: PHHY2011US60088

PATIENT
  Sex: Female

DRUGS (4)
  1. GILENYA [Suspect]
     Indication: MULTIPLE SCLEROSIS
     Dosage: 0.5 MG, QD
     Route: 048
     Dates: start: 20101201
  2. VITAMIN D [Concomitant]
     Dosage: 500 IU, UNK
  3. MESALAMINE [Concomitant]
     Indication: COLITIS ULCERATIVE
     Dosage: 1.2 G, DAILY
     Route: 048
  4. SOLIFENACIN SUCCINATE [Concomitant]
     Indication: HYPERTONIC BLADDER
     Dosage: 5 MG, QD
     Route: 048

REACTIONS (4)
  - ACID FAST BACILLI INFECTION [None]
  - MYCOBACTERIUM CHELONAE INFECTION [None]
  - INFLAMMATION [None]
  - PAPULE [None]
